FAERS Safety Report 6802177-7 (Version None)
Quarter: 2010Q2

REPORT INFORMATION
  Report Type: 
  Country: None (occurrence: None)
  Receive Date: 20100629
  Receipt Date: 20080114
  Transmission Date: 20101027
  Serious: Yes (Other)
  Sender: FDA-Public Use
  Company Number: US-PFIZER INC-2007074327

PATIENT
  Sex: Female
  Weight: 81.6 kg

DRUGS (7)
  1. XANAX [Suspect]
     Indication: DEPRESSION
     Dosage: 0.5MG
     Dates: start: 20030101, end: 20070101
  2. VITAMINS [Concomitant]
  3. MULTI-VITAMINS [Concomitant]
  4. FOLIC ACID [Concomitant]
  5. PROTEIN SUPPLEMENTS [Concomitant]
  6. VICODIN [Concomitant]
     Dosage: AS NEEDED
  7. LIBRIUM [Concomitant]

REACTIONS (8)
  - ABDOMINAL DISTENSION [None]
  - BLOOD POTASSIUM DECREASED [None]
  - DISSOCIATION [None]
  - FEELING ABNORMAL [None]
  - FLUSHING [None]
  - HEART RATE DECREASED [None]
  - MENTAL IMPAIRMENT [None]
  - WEIGHT INCREASED [None]
